FAERS Safety Report 9991973 (Version 3)
Quarter: 2014Q2

REPORT INFORMATION
  Report Type: Spontaneous
  Country: IT (occurrence: IT)
  Receive Date: 20140310
  Receipt Date: 20140513
  Transmission Date: 20141212
  Serious: Yes (Hospitalization)
  Sender: FDA-Public Use
  Company Number: IT-JNJFOC-20140301881

PATIENT
  Age: 55 Year
  Sex: Female

DRUGS (4)
  1. SIMPONI [Suspect]
     Indication: RHEUMATOID ARTHRITIS
     Route: 058
     Dates: start: 20130213, end: 20140120
  2. ETORICOXIB [Concomitant]
     Route: 048
     Dates: start: 2007
  3. SIMVASTATIN [Concomitant]
     Route: 048
  4. FATTY ACIDS NOS [Concomitant]
     Route: 048

REACTIONS (1)
  - Adenocarcinoma [Recovering/Resolving]
